FAERS Safety Report 18335928 (Version 3)
Quarter: 2020Q4

REPORT INFORMATION
  Report Type: Spontaneous
  Country: US (occurrence: US)
  Receive Date: 20201001
  Receipt Date: 20201125
  Transmission Date: 20210113
  Serious: No
  Sender: FDA-Public Use
  Company Number: US-GLAXOSMITHKLINE-US2020190549

PATIENT
  Sex: Female

DRUGS (1)
  1. NUCALA [Suspect]
     Active Substance: MEPOLIZUMAB
     Indication: PRODUCT USED FOR UNKNOWN INDICATION
     Dosage: 100 MG/ML
     Route: 065

REACTIONS (4)
  - Product complaint [Unknown]
  - Exposure via skin contact [Unknown]
  - Injection site pain [Recovered/Resolved]
  - Product dose omission issue [Unknown]
